FAERS Safety Report 19713151 (Version 2)
Quarter: 2021Q3

REPORT INFORMATION
  Report Type: Report from Study
  Country: None (occurrence: US)
  Receive Date: 20210816
  Receipt Date: 20210820
  Transmission Date: 20211014
  Serious: Yes (Other)
  Sender: FDA-Public Use
  Company Number: US-ABBVIE-21K-163-4034732-00

PATIENT
  Age: 27 Year
  Sex: Female

DRUGS (1)
  1. HUMIRA [Suspect]
     Active Substance: ADALIMUMAB
     Indication: HIDRADENITIS
     Route: 058

REACTIONS (4)
  - Uterine cyst [Not Recovered/Not Resolved]
  - White blood cell count increased [Recovering/Resolving]
  - Uterine haemorrhage [Not Recovered/Not Resolved]
  - Post ablation syndrome [Not Recovered/Not Resolved]

NARRATIVE: CASE EVENT DATE: 202007
